FAERS Safety Report 9514615 (Version 1)
Quarter: 2013Q1

REPORT INFORMATION
  Report Type: Spontaneous
  Country: US (occurrence: None)
  Receive Date: 20130305
  Receipt Date: 20130305
  Transmission Date: 20140127
  Serious: Yes (Hospitalization)
  Sender: FDA-Public Use
  Company Number: 163-21880-12123033

PATIENT
  Age: 88 Year
  Sex: Male

DRUGS (16)
  1. REVLIMID [Suspect]
     Indication: MYELODYSPLASTIC SYNDROME
     Dosage: 10 MG, 21 IN 21 D, PO
     Route: 048
     Dates: start: 20121130, end: 20121220
  2. CAPTOPRIL (CAPTOPRIL) (UNKNOWN) [Concomitant]
  3. COREG (CARVEDILOL) (UNKNOWN) [Concomitant]
  4. DIGOXIN (DIGOXIN) (UNKNOWN) (DIGOXIN) [Concomitant]
  5. FINASTERIDE (FINASTERIDE) (UNKNOWN) [Concomitant]
  6. FLOMAX (TAMSULOSIN HYDROCHLORIDE) (UNKNOWN) [Concomitant]
  7. FUROSEMIDE (FUROSEMIDE) (UNKNOWN) [Concomitant]
  8. METOLAZONE (METOLAZONE) (UNKNOWN) [Concomitant]
  9. PRILOSEC (OMEPRAZOLE) (UNKNOWN) [Concomitant]
  10. SPIRIVA (TIOTROPIUM BROMIDE) (UNKNOWN) [Concomitant]
  11. SYMBICORT (SYMBICORT TURBUHALER ^DRACO^) (UNKNOWN) [Concomitant]
  12. TRAMADOL (TRAMADOL) (UNKNOWN) [Concomitant]
  13. TYLENOL (PARACETAMOL) (UNKNOWN) [Concomitant]
  14. XOPENEX (LEVOSALBUTAMOL) (UNKNOWN) [Concomitant]
  15. DULCOLAX (BISACODYL) (UNKNOWN) [Concomitant]
  16. FOLTAB (FOLIC ACID) (UNKNOWN) [Concomitant]

REACTIONS (1)
  - Pneumonia [None]
